FAERS Safety Report 9696664 (Version 1)
Quarter: 2013Q4

REPORT INFORMATION
  Report Type: Spontaneous
  Country: US (occurrence: None)
  Receive Date: 20131115
  Receipt Date: 20131115
  Transmission Date: 20140711
  Serious: Yes (Other)
  Sender: FDA-Public Use
  Company Number: IMP_06880_2013

PATIENT
  Sex: Female

DRUGS (2)
  1. BUPROPION HYDROCHLORIDE [Suspect]
     Indication: MENTAL DISORDER
     Dosage: (DF)
     Dates: start: 20091216
  2. LAMICTAL [Suspect]
     Indication: NERVOUS SYSTEM DISORDER
     Dosage: (DF)
     Dates: start: 20091216

REACTIONS (1)
  - Brain neoplasm [None]
